FAERS Safety Report 19302235 (Version 4)
Quarter: 2021Q3

REPORT INFORMATION
  Report Type: Report from Study
  Country: CA (occurrence: CA)
  Receive Date: 20210525
  Receipt Date: 20210907
  Transmission Date: 20211014
  Serious: Yes (Hospitalization)
  Sender: FDA-Public Use
  Company Number: PHHY2019CA071386

PATIENT
  Age: 70 Year
  Sex: Male

DRUGS (7)
  1. HUMIRA [Concomitant]
     Active Substance: ADALIMUMAB
     Indication: PRODUCT USED FOR UNKNOWN INDICATION
     Dosage: 1 DF, Q2MO (BI MONTHLY)
     Route: 058
  2. COSENTYX [Suspect]
     Active Substance: SECUKINUMAB
     Dosage: UNK (RESTARTED ON 01 JUL)
     Route: 065
  3. ENBREL [Concomitant]
     Active Substance: ETANERCEPT
     Indication: PRODUCT USED FOR UNKNOWN INDICATION
     Dosage: UNK UNK, QW
     Route: 058
     Dates: start: 2012
  4. COSENTYX [Suspect]
     Active Substance: SECUKINUMAB
     Indication: PSORIASIS
     Dosage: 300 MG, QMO
     Route: 058
     Dates: start: 20180306
  5. COSENTYX [Suspect]
     Active Substance: SECUKINUMAB
     Dosage: 300 MG, QMO
     Route: 058
     Dates: start: 20190226
  6. METHOTREXATE. [Concomitant]
     Active Substance: METHOTREXATE
     Indication: PRODUCT USED FOR UNKNOWN INDICATION
     Dosage: 5 DF, QW
     Route: 048
  7. COSENTYX [Suspect]
     Active Substance: SECUKINUMAB
     Dosage: UNK (RESTARTED)
     Route: 065
     Dates: start: 20210601

REACTIONS (4)
  - Multiple injuries [Unknown]
  - Road traffic accident [Recovered/Resolved with Sequelae]
  - Psoriasis [Unknown]
  - Drug ineffective [Not Recovered/Not Resolved]

NARRATIVE: CASE EVENT DATE: 20210411
